FAERS Safety Report 5955355-3 (Version None)
Quarter: 2008Q4

REPORT INFORMATION
  Report Type: 
  Country: None (occurrence: None)
  Receive Date: 20081113
  Receipt Date: 20081113
  Transmission Date: 20090506
  Serious: Yes (Hospitalization)
  Sender: FDA-Public Use
  Company Number: None

PATIENT
  Age: 62 Year
  Sex: Male
  Weight: 66.7 kg

DRUGS (1)
  1. PHENYTOIN [Suspect]
     Indication: CONVULSION
     Dosage: 300 MG BID PO
     Route: 048
     Dates: start: 20080908

REACTIONS (5)
  - ATAXIA [None]
  - DIZZINESS [None]
  - FALL [None]
  - NERVOUSNESS [None]
  - VISUAL IMPAIRMENT [None]
